FAERS Safety Report 5270786-5 (Version None)
Quarter: 2007Q1

REPORT INFORMATION
  Report Type: 
  Country: None (occurrence: None)
  Receive Date: 20070321
  Receipt Date: 20050825
  Transmission Date: 20070707
  Serious: Yes (Life-Threatening, Other)
  Sender: FDA-Public Use
  Company Number: CA-JNJFOC-20050805096

PATIENT
  Sex: Female
  Weight: 49.9 kg

DRUGS (12)
  1. ABCIXIMAB [Suspect]
     Indication: CORONARY ANGIOPLASTY
     Route: 042
  2. NOVOLIN 50/50 [Concomitant]
     Indication: DIABETES MELLITUS
  3. ASPIRIN [Concomitant]
     Indication: CARDIOVASCULAR EVENT PROPHYLAXIS
  4. VASOTEC [Concomitant]
     Indication: HYPERTENSION
  5. HYDROCHLOROTHIAZIDE [Concomitant]
     Indication: HYPERTENSION
  6. HEPARIN [Concomitant]
     Indication: CORONARY ANGIOPLASTY
  7. METOLAZONE [Concomitant]
     Indication: RENAL FAILURE
  8. GRAVOL TAB [Concomitant]
     Indication: NAUSEA
  9. METOCLOPRAMIDE HYDROCHLORIDE [Concomitant]
     Indication: NAUSEA
  10. HUMAN INSULIN [Concomitant]
     Indication: DIABETES MELLITUS
  11. DIABETIC BLINDED THERAPY [Concomitant]
     Indication: ACUTE CORONARY SYNDROME
  12. LASIX [Concomitant]

REACTIONS (4)
  - NODAL ARRHYTHMIA [None]
  - SINUS ARREST [None]
  - SUPRAVENTRICULAR EXTRASYSTOLES [None]
  - THROMBOCYTOPENIA [None]
